FAERS Safety Report 18542461 (Version 1)
Quarter: 2020Q4

REPORT INFORMATION
  Report Type: Spontaneous
  Country: US (occurrence: US)
  Receive Date: 20201125
  Receipt Date: 20201125
  Transmission Date: 20210114
  Serious: Yes (Hospitalization, Other)
  Sender: FDA-Public Use
  Company Number: US-B.I. PHARMACEUTICALS,INC./RIDGEFIELD-2020-BI-062836

PATIENT
  Age: 46 Year
  Sex: Male

DRUGS (8)
  1. CELLCEPT [Concomitant]
     Active Substance: MYCOPHENOLATE MOFETIL\MYCOPHENOLATE MOFETIL HYDROCHLORIDE
     Indication: HEART TRANSPLANT
     Dosage: 1000 MG BY MOUTH TWICE DAILY
     Route: 048
  2. JARDIANCE [Suspect]
     Active Substance: EMPAGLIFLOZIN
     Indication: TYPE 2 DIABETES MELLITUS
     Dosage: 25 MG DAILY
     Route: 065
     Dates: start: 202001
  3. PROGRAF [Concomitant]
     Active Substance: TACROLIMUS
     Indication: HEART TRANSPLANT
     Dosage: 2 MG EACH AM, 2.5 MG EACH PM BY MOUTH
     Route: 048
  4. PRAVASTATIN. [Concomitant]
     Active Substance: PRAVASTATIN
     Indication: PRODUCT USED FOR UNKNOWN INDICATION
     Dosage: 20 MG BY MOUTH DAILY
     Route: 048
  5. PREDNISONE. [Concomitant]
     Active Substance: PREDNISONE
     Indication: HEART TRANSPLANT
     Dosage: 1 MG BY MOUTH DAILY
     Route: 048
  6. OMEPRAZOLE. [Concomitant]
     Active Substance: OMEPRAZOLE
     Indication: PRODUCT USED FOR UNKNOWN INDICATION
     Dosage: 40 MG BY MOUTH DAILY
     Route: 048
  7. EVEROLIMUS. [Concomitant]
     Active Substance: EVEROLIMUS
     Indication: HEART TRANSPLANT
     Dosage: 0.5 MG EACH AM, 0.75 MG EACH PM BY MOUTH
     Route: 048
     Dates: end: 202011
  8. GLIMEPIRIDE. [Suspect]
     Active Substance: GLIMEPIRIDE
     Indication: TYPE 2 DIABETES MELLITUS
     Dosage: 1 MG BY MOUTH DAILY
     Route: 048

REACTIONS (7)
  - Diabetic ketoacidosis [Not Recovered/Not Resolved]
  - Disorientation [Not Recovered/Not Resolved]
  - Abdominal pain upper [Recovered/Resolved]
  - Dehydration [Not Recovered/Not Resolved]
  - Decreased appetite [Recovered/Resolved]
  - Gastroenteritis norovirus [Recovered/Resolved]
  - Diarrhoea [Recovered/Resolved]

NARRATIVE: CASE EVENT DATE: 202011
